FAERS Safety Report 16007444 (Version 1)
Quarter: 2019Q1

REPORT INFORMATION
  Report Type: Report from Study
  Country: IT (occurrence: IT)
  Receive Date: 20190226
  Receipt Date: 20190226
  Transmission Date: 20190418
  Serious: Yes (Hospitalization)
  Sender: FDA-Public Use
  Company Number: IT-BAYER-2019-040522

PATIENT
  Age: 40 Year
  Sex: Male

DRUGS (1)
  1. ASPIRINA [Suspect]
     Active Substance: ASPIRIN
     Indication: TENDERNESS
     Dosage: 500 MG, UNK
     Route: 048
     Dates: start: 20190213, end: 20190213

REACTIONS (4)
  - Feeling hot [Recovered/Resolved]
  - Erythema [Recovered/Resolved]
  - Pruritus generalised [Recovered/Resolved]
  - Nasal congestion [Recovered/Resolved]

NARRATIVE: CASE EVENT DATE: 20190213
